FAERS Safety Report 4499837-2 (Version None)
Quarter: 2004Q4

REPORT INFORMATION
  Report Type: 
  Country: None (occurrence: None)
  Receive Date: 20041108
  Receipt Date: 20041025
  Transmission Date: 20050328
  Serious: Yes (Hospitalization)
  Sender: FDA-Public Use
  Company Number: SUS1-2004-00707

PATIENT
  Age: 30 Year
  Sex: Male

DRUGS (6)
  1. PENTASA [Suspect]
     Indication: CROHN'S DISEASE
     Dosage: 2G, DAILY, ORAL
     Route: 048
     Dates: start: 19980101, end: 20040605
  2. AZATHIOPRINE [Concomitant]
  3. FERROUS SULFATE TAB [Concomitant]
  4. OMEPRAZOLE [Concomitant]
  5. LANSOPRAZOLE [Concomitant]
  6. BUDESONIDE (BUDESONIDE) [Concomitant]

REACTIONS (2)
  - BLOOD IMMUNOGLOBULIN A ABNORMAL [None]
  - NEPHRITIS INTERSTITIAL [None]
